FAERS Safety Report 5409341-2 (Version None)
Quarter: 2007Q3

REPORT INFORMATION
  Report Type: 
  Country: None (occurrence: None)
  Receive Date: 20070809
  Receipt Date: 20070730
  Transmission Date: 20080115
  Serious: Yes (Other)
  Sender: FDA-Public Use
  Company Number: GB-JNJFOC-20070303951

PATIENT
  Age: 34 Year
  Sex: Female

DRUGS (5)
  1. DAKTACORT [Suspect]
     Indication: ECZEMA
     Route: 061
  2. ANTIHISTAMINE [Concomitant]
     Route: 065
  3. MICROGYNON [Concomitant]
     Route: 065
  4. BRICANYL [Concomitant]
     Route: 065
  5. SYMBICORT [Concomitant]
     Route: 065

REACTIONS (1)
  - ANAPHYLACTIC REACTION [None]
